FAERS Safety Report 8975555 (Version 4)
Quarter: 2013Q3

REPORT INFORMATION
  Report Type: Report from Study
  Country: FR (occurrence: FR)
  Receive Date: 20121219
  Receipt Date: 20130722
  Transmission Date: 20140515
  Serious: Yes (Hospitalization)
  Sender: FDA-Public Use
  Company Number: FR-PFIZER INC-2012317305

PATIENT
  Age: 52 Year
  Sex: Male
  Weight: 98 kg

DRUGS (19)
  1. PREGABALIN [Suspect]
     Indication: NEURALGIA
     Dosage: 50 MG, 2X/DAY
     Dates: start: 20121117, end: 20121126
  2. INVESTIGATIONAL DRUG [Suspect]
     Indication: CEREBROVASCULAR ACCIDENT
     Dosage: DAILY DOSE: UNK (1 IN 1 D)
     Route: 048
     Dates: start: 20121026, end: 20121125
  3. OGAST [Concomitant]
     Indication: PROPHYLAXIS
     Dosage: 40 MG, 1 IN 1 D
     Route: 048
     Dates: start: 20121022
  4. OGAST [Concomitant]
     Dosage: 15 MG, 1 IN 1 D
     Route: 048
     Dates: end: 20121109
  5. PARACETAMOL [Concomitant]
     Indication: PAIN
     Dosage: 1 G, ON REQUEST
     Route: 042
     Dates: start: 20121022, end: 20121101
  6. PARACETAMOL [Concomitant]
     Indication: HEADACHE
     Dosage: 1 G, UNK
     Route: 042
     Dates: start: 20121102
  7. PARACETAMOL [Concomitant]
     Indication: COMPLEX REGIONAL PAIN SYNDROME
  8. AERIUS [Concomitant]
     Indication: ANGIOEDEMA
     Dosage: 1 DF, UNK
     Dates: start: 20121022, end: 20121028
  9. CETIRIZINE [Concomitant]
     Indication: ANGIOEDEMA
     Dosage: 10 MG, UNK
     Dates: start: 20121022, end: 20121028
  10. SOLUPRED [Concomitant]
     Indication: ANGIOEDEMA
     Dosage: 40 TO 20 MG PER OS (1 IN 1 D)
     Route: 048
     Dates: start: 20121022, end: 20121028
  11. NICOPATCH [Concomitant]
     Indication: SMOKING CESSATION THERAPY
     Dosage: 21 MG, 1 IN 1 D
     Route: 062
     Dates: start: 20121022
  12. LOVENOX [Concomitant]
     Indication: THROMBOSIS PROPHYLAXIS
     Dosage: 4000 UI ANT-XA/0.4 ML, 40 MG
     Route: 058
     Dates: start: 20121023, end: 20121213
  13. TAHOR [Concomitant]
     Indication: LOW DENSITY LIPOPROTEIN
     Dosage: 40 MG, 1 IN 1 D
     Dates: start: 20121023
  14. TAHOR [Concomitant]
     Indication: HYPERCHOLESTEROLAEMIA
  15. PLAVIX [Concomitant]
     Indication: CEREBROVASCULAR ACCIDENT PROPHYLAXIS
     Dosage: 75 MG, 1 IN 1 D
     Dates: start: 20121025, end: 20130111
  16. PLAVIX [Concomitant]
     Indication: PROPHYLAXIS
  17. BI-PROFENID [Concomitant]
     Indication: LIGAMENT SPRAIN
     Dosage: 100 MG, 2 IN 1 D
     Dates: start: 20121102, end: 20121113
  18. BI-PROFENID [Concomitant]
     Indication: ARTHRALGIA
  19. DAFALGAN [Concomitant]
     Dosage: 500 MG, 2 IN 1 D
     Dates: start: 20121022

REACTIONS (1)
  - Hypersensitivity vasculitis [Recovering/Resolving]
